FAERS Safety Report 4277393-1 (Version None)
Quarter: 2004Q1

REPORT INFORMATION
  Report Type: 
  Country: None (occurrence: None)
  Receive Date: 20040122
  Receipt Date: 20020903
  Transmission Date: 20041129
  Serious: Yes (Hospitalization, Other)
  Sender: FDA-Public Use
  Company Number: US-GLAXOSMITHKLINE-A0380304A

PATIENT
  Age: 30 Year
  Sex: Female
  Weight: 55.9 kg

DRUGS (5)
  1. PAXIL [Suspect]
     Indication: POSTPARTUM DEPRESSION
     Dosage: 20MG AT NIGHT
     Route: 048
     Dates: start: 20001101, end: 20020101
  2. COLACE [Concomitant]
  3. SENOKOT [Concomitant]
  4. ASPIRIN [Concomitant]
  5. PRENATAL VITAMINS [Concomitant]

REACTIONS (31)
  - ABDOMINAL PAIN [None]
  - ANKLE FRACTURE [None]
  - ANXIETY [None]
  - BACK PAIN [None]
  - CARTILAGE INJURY [None]
  - CONFUSIONAL STATE [None]
  - DIARRHOEA [None]
  - DISTURBANCE IN ATTENTION [None]
  - DIZZINESS [None]
  - DRUG DEPENDENCE [None]
  - DRUG WITHDRAWAL SYNDROME [None]
  - FATIGUE [None]
  - FIBULA FRACTURE [None]
  - HEADACHE [None]
  - INJURY [None]
  - LOSS OF CONSCIOUSNESS [None]
  - LUNG INJURY [None]
  - NAUSEA [None]
  - NIGHTMARE [None]
  - OEDEMA PERIPHERAL [None]
  - PAIN [None]
  - PALPITATIONS [None]
  - PARAESTHESIA [None]
  - PATELLA FRACTURE [None]
  - PNEUMOTHORAX [None]
  - RIB FRACTURE [None]
  - ROAD TRAFFIC ACCIDENT [None]
  - SLEEP DISORDER [None]
  - SYNOVITIS [None]
  - TIBIA FRACTURE [None]
  - VOMITING [None]
